FAERS Safety Report 14963741 (Version 1)
Quarter: 2020Q3

REPORT INFORMATION
  Report Type: Spontaneous
  Country: GR (occurrence: GR)
  Receive Date: 20180601
  Receipt Date: 20180601
  Transmission Date: 20201105
  Serious: Yes (Life-Threatening, Hospitalization, Other)
  Sender: FDA-Public Use
  Company Number: GR-PFIZER INC-2018218485

PATIENT
  Age: 27 Year
  Sex: Female

DRUGS (5)
  1. CRIZOTINIB [Suspect]
     Active Substance: CRIZOTINIB
     Dosage: 250 MG, BID
  2. ALECTINIB. [Suspect]
     Active Substance: ALECTINIB
     Dosage: UNK
  3. ZYKADIA [Suspect]
     Active Substance: CERITINIB
     Dosage: 450 MG, QD
     Route: 065
  4. CRIZOTINIB [Suspect]
     Active Substance: CRIZOTINIB
     Dosage: 250 MG, QD
     Route: 065
     Dates: start: 20160209
  5. ZYKADIA [Suspect]
     Active Substance: CERITINIB
     Dosage: 750 MG, QD

REACTIONS (17)
  - Hepatotoxicity [Unknown]
  - Aspartate aminotransferase increased [Unknown]
  - Nausea [Unknown]
  - Weight increased [Unknown]
  - Abdominal distension [Unknown]
  - Productive cough [Recovered/Resolved]
  - Vomiting [Unknown]
  - Visual impairment [Unknown]
  - Neoplasm progression [Unknown]
  - Alanine aminotransferase increased [Unknown]
  - Pyrexia [Recovered/Resolved]
  - Abdominal pain [Unknown]
  - Brain oedema [Unknown]
  - Headache [Unknown]
  - Generalised oedema [Unknown]
  - Constipation [Unknown]
  - Fatigue [Unknown]

NARRATIVE: CASE EVENT DATE: 201512
